FAERS Safety Report 7682978-6 (Version None)
Quarter: 2011Q3

REPORT INFORMATION
  Report Type: 
  Country: None (occurrence: None)
  Receive Date: 20110812
  Receipt Date: 20110812
  Transmission Date: 20111222
  Serious: Yes (Other)
  Sender: FDA-Public Use
  Company Number: None

PATIENT
  Age: 66 Year
  Sex: Female
  Weight: 74.3899 kg

DRUGS (1)
  1. LAMOTRIGINE [Suspect]
     Indication: EPILEPSY
     Dosage: 100MG 1-2X DAY
     Dates: start: 20110705, end: 20110720

REACTIONS (9)
  - DYSGEUSIA [None]
  - RHINORRHOEA [None]
  - SUICIDAL IDEATION [None]
  - ANXIETY [None]
  - DEPRESSION [None]
  - TREMOR [None]
  - STRESS [None]
  - CRYING [None]
  - AFFECTIVE DISORDER [None]
